FAERS Safety Report 8184784-5 (Version None)
Quarter: 2012Q1

REPORT INFORMATION
  Report Type: 
  Country: None (occurrence: None)
  Receive Date: 20120301
  Receipt Date: 20120220
  Transmission Date: 20120608
  Serious: Yes (Other)
  Sender: FDA-Public Use
  Company Number: 2012P1007858

PATIENT
  Age: 77 Year
  Sex: Female

DRUGS (1)
  1. PREDNISOLONE [Suspect]
     Indication: MYCOSIS FUNGOIDES
     Dosage: 5 MG, BID

REACTIONS (6)
  - ENCEPHALITIS FUNGAL [None]
  - CRYPTOCOCCAL FUNGAEMIA [None]
  - CRYPTOCOCCAL CUTANEOUS INFECTION [None]
  - MENINGITIS CRYPTOCOCCAL [None]
  - DISSEMINATED CRYPTOCOCCOSIS [None]
  - FALL [None]
